FAERS Safety Report 9782448 (Version 1)
Quarter: 2013Q4

REPORT INFORMATION
  Report Type: Spontaneous
  Country: US (occurrence: None)
  Receive Date: 20131223
  Receipt Date: 20131223
  Transmission Date: 20140711
  Serious: Yes (Hospitalization)
  Sender: FDA-Public Use
  Company Number: None

PATIENT
  Age: 89 None
  Sex: Male
  Weight: 67 kg

DRUGS (2)
  1. METOPROLOL [Suspect]
     Indication: ATRIAL FIBRILLATION
     Dosage: 1/2 TAB, BID, PO
     Route: 048
     Dates: start: 20060921, end: 20110217
  2. METOPROLOL [Suspect]
     Indication: CORONARY ARTERY DISEASE
     Dosage: 1/2 TAB, BID, PO
     Route: 048
     Dates: start: 20060921, end: 20110217

REACTIONS (4)
  - Bradycardia [None]
  - Chest pain [None]
  - Nervousness [None]
  - Atrial fibrillation [None]
